FAERS Safety Report 14826253 (Version 1)
Quarter: 2018Q2

REPORT INFORMATION
  Report Type: Spontaneous
  Country: US (occurrence: US)
  Receive Date: 20180403
  Receipt Date: 20180403
  Transmission Date: 20180711
  Serious: Yes (Hospitalization)
  Sender: FDA-Public Use
  Company Number: None

PATIENT
  Age: 50 Year
  Sex: Female
  Weight: 96.75 kg

DRUGS (1)
  1. AUBAGIO [Suspect]
     Active Substance: TERIFLUNOMIDE
     Indication: MULTIPLE SCLEROSIS
     Dates: end: 20160820

REACTIONS (17)
  - Diarrhoea [None]
  - Paraesthesia [None]
  - Drug ineffective [None]
  - Muscular weakness [None]
  - Areflexia [None]
  - Migraine [None]
  - Feeling abnormal [None]
  - Nausea [None]
  - Peripheral swelling [None]
  - Sensory disturbance [None]
  - Gait disturbance [None]
  - Oedema [None]
  - Blood pressure increased [None]
  - Pain in extremity [None]
  - Alopecia [None]
  - Musculoskeletal disorder [None]
  - Muscle tightness [None]

NARRATIVE: CASE EVENT DATE: 20160628
